FAERS Safety Report 7689181-4 (Version None)
Quarter: 2011Q3

REPORT INFORMATION
  Report Type: 
  Country: None (occurrence: None)
  Receive Date: 20110817
  Receipt Date: 20110809
  Transmission Date: 20111222
  Serious: Yes (Hospitalization)
  Sender: FDA-Public Use
  Company Number: JP-B.I. PHARMACEUTICALS,INC./RIDGEFIELD-2011-BP-16793NB

PATIENT
  Age: 6 Decade

DRUGS (5)
  1. BISOPROLOL FUMARATE [Concomitant]
     Dosage: 25 MG
     Route: 065
  2. MUCOSTA [Concomitant]
     Dosage: 300 MG
     Route: 065
  3. URSO 250 [Concomitant]
     Dosage: 300 MG
     Route: 065
  4. RIMATIL [Concomitant]
     Dosage: 200 MG
     Route: 065
  5. PRADAXA [Suspect]
     Indication: ATRIAL FIBRILLATION
     Dosage: 300 MG
     Route: 065

REACTIONS (2)
  - OESOPHAGEAL ULCER [None]
  - HAEMATEMESIS [None]
